FAERS Safety Report 16624749 (Version 2)
Quarter: 2019Q3

REPORT INFORMATION
  Report Type: Report from Study
  Country: IT (occurrence: IT)
  Receive Date: 20190724
  Receipt Date: 20190803
  Transmission Date: 20191004
  Serious: Yes (Hospitalization)
  Sender: FDA-Public Use
  Company Number: IT-ACCORD-146411

PATIENT
  Age: 57 Year
  Sex: Male

DRUGS (3)
  1. DELTACORTENE [Suspect]
     Active Substance: PREDNISONE
     Dosage: STRENGTH : 5 MG
     Route: 048
     Dates: start: 20190512, end: 20190512
  2. ALMARYTM [Suspect]
     Active Substance: FLECAINIDE ACETATE
     Dosage: STRENGTH : 100 MG
     Route: 048
     Dates: start: 20190512, end: 20190512
  3. AMLODIPINE [Suspect]
     Active Substance: AMLODIPINE BESYLATE
     Route: 048
     Dates: start: 20190512, end: 20190512

REACTIONS (3)
  - Sopor [Recovering/Resolving]
  - Vomiting [Recovering/Resolving]
  - Drug abuse [Unknown]

NARRATIVE: CASE EVENT DATE: 20190512
